FAERS Safety Report 9439157 (Version 3)
Quarter: 2014Q1

REPORT INFORMATION
  Report Type: Report from Study
  Country: BE (occurrence: BE)
  Receive Date: 20130802
  Receipt Date: 20140225
  Transmission Date: 20141002
  Serious: Yes (Hospitalization)
  Sender: FDA-Public Use
  Company Number: BE-EXELIXIS-XL18413003048

PATIENT
  Age: 68 Year
  Sex: Male

DRUGS (7)
  1. XL184 [Suspect]
     Indication: PROSTATE CANCER
     Dosage: 60 MG, QD
     Route: 048
     Dates: start: 20130411, end: 20130515
  2. XL184 [Suspect]
     Dosage: 40 MG, QD
     Route: 048
     Dates: start: 20130523, end: 20130713
  3. XL184 [Suspect]
     Dosage: 20 MG, QD
     Route: 048
     Dates: start: 20130726
  4. XL184 [Suspect]
     Indication: PROSTATE CANCER
     Dosage: 5 MG, BID
     Route: 048
     Dates: start: 20130411
  5. XL184 [Suspect]
     Dosage: 5 MG, BID
     Route: 048
     Dates: start: 20130726
  6. PANTOMED [Concomitant]
  7. COVERSYL [Concomitant]

REACTIONS (2)
  - Pyrexia [Recovered/Resolved]
  - Nausea [Recovered/Resolved]
